FAERS Safety Report 9513478 (Version 1)
Quarter: 2013Q3

REPORT INFORMATION
  Report Type: Spontaneous
  Country: US (occurrence: US)
  Receive Date: 20130910
  Receipt Date: 20130910
  Transmission Date: 20140515
  Serious: No
  Sender: FDA-Public Use
  Company Number: US-TARO-2013P1004782

PATIENT
  Age: 62 Year
  Sex: Female
  Weight: 117.94 kg

DRUGS (13)
  1. WARFARIN SODIUM TABLETS USP 1MG [Suspect]
     Indication: DEEP VEIN THROMBOSIS
     Route: 048
  2. WARFARIN SODIUM TABLETS USP 5MG [Suspect]
     Route: 048
  3. WARFARIN SODIUM TABLETS USP 5MG [Suspect]
     Indication: DEEP VEIN THROMBOSIS
     Route: 048
  4. WARFARIN SODIUM TABLETS USP 5MG [Suspect]
     Route: 048
  5. WARFARIN SODIUM TABLETS USP 5MG [Suspect]
     Indication: DEEP VEIN THROMBOSIS
     Route: 048
  6. WARFARIN SODIUM TABLETS USP 5MG [Suspect]
     Route: 048
     Dates: start: 20130408, end: 20130408
  7. WARFARIN SODIUM TABLETS USP 5MG [Suspect]
     Indication: DEEP VEIN THROMBOSIS
     Route: 048
     Dates: start: 20130408, end: 20130408
  8. INSULIN [Concomitant]
  9. LOSARTAN [Concomitant]
  10. LEVOTHYROXINE [Concomitant]
  11. CHROMIUM PICOLINATE SUPPLEMENT [Suspect]
     Dates: start: 201303, end: 20130412
  12. SIMVASTATIN [Concomitant]
  13. WARFARIN SODIUM TABLETS USP 1MG [Suspect]
     Route: 048

REACTIONS (3)
  - International normalised ratio decreased [Recovering/Resolving]
  - Product quality issue [Unknown]
  - Drug interaction [Unknown]
